FAERS Safety Report 5326462-3 (Version None)
Quarter: 2007Q2

REPORT INFORMATION
  Report Type: 
  Country: None (occurrence: None)
  Receive Date: 20070516
  Receipt Date: 20070510
  Transmission Date: 20071010
  Serious: Yes (Hospitalization)
  Sender: FDA-Public Use
  Company Number: US-ROCHE-486488

PATIENT
  Age: 62 Year
  Sex: Female
  Weight: 49.9 kg

DRUGS (4)
  1. BONIVA [Suspect]
     Indication: OSTEOPOROSIS
     Route: 042
     Dates: start: 20070301, end: 20070301
  2. MIACALCIN [Concomitant]
     Indication: DRUG USE FOR UNKNOWN INDICATION
  3. PAMELOR [Concomitant]
     Indication: SOMNOLENCE
  4. DETROL [Concomitant]
     Dosage: INDICATION REPORTED AS ^BLADDER^ NOT OTHERWISE SPECIFIED.

REACTIONS (2)
  - CELLULITIS [None]
  - HYPERSENSITIVITY [None]
